FAERS Safety Report 9269764 (Version 1)
Quarter: 2013Q2

REPORT INFORMATION
  Report Type: Spontaneous
  Country: US (occurrence: None)
  Receive Date: 20130503
  Receipt Date: 20130503
  Transmission Date: 20140414
  Serious: Yes (Hospitalization)
  Sender: FDA-Public Use
  Company Number: None

PATIENT
  Age: 69 Year
  Sex: Male
  Weight: 99.7 kg

DRUGS (2)
  1. BEVACIZUMAB [Suspect]
     Route: 042
     Dates: start: 20131205, end: 20130205
  2. DALTEPARIN [Suspect]
     Dates: start: 20121231, end: 20130214

REACTIONS (1)
  - Gastric haemorrhage [None]
